FAERS Safety Report 7924026-6 (Version None)
Quarter: 2011Q4

REPORT INFORMATION
  Report Type: 
  Country: None (occurrence: None)
  Receive Date: 20111117
  Receipt Date: 20110214
  Transmission Date: 20120403
  Serious: No
  Sender: FDA-Public Use
  Company Number: US-AMGEN-USASP2011008456

PATIENT
  Age: 57 Year
  Sex: Female
  Weight: 116.1 kg

DRUGS (1)
  1. ENBREL [Suspect]
     Indication: PRODUCT USED FOR UNKNOWN INDICATION
     Dosage: 50 MG, QWK
     Dates: start: 20110127

REACTIONS (2)
  - INJECTION SITE HAEMATOMA [None]
  - NASOPHARYNGITIS [None]
